FAERS Safety Report 10236392 (Version 2)
Quarter: 2014Q2

REPORT INFORMATION
  Report Type: Report from Study
  Country: US (occurrence: US)
  Receive Date: 20140613
  Receipt Date: 20140629
  Transmission Date: 20141212
  Serious: Yes (Hospitalization)
  Sender: FDA-Public Use
  Company Number: PHHO2014US008089

PATIENT
  Age: 66 Year
  Sex: Female
  Weight: 95.69 kg

DRUGS (7)
  1. ACZ885 [Suspect]
     Indication: CARDIOVASCULAR DISORDER
     Dosage: 150 MG, UNK
     Route: 058
     Dates: start: 20120907, end: 20140307
  2. FLUXETIN [Concomitant]
     Indication: DEPRESSION
     Dosage: 20 MG, QD
     Route: 048
  3. LOSARTAN [Concomitant]
     Indication: HYPERTENSION
     Dosage: 100 MG, QD
     Route: 048
     Dates: start: 20111025
  4. METFORMIN HYDROCHLORIDE [Concomitant]
     Indication: DIABETES MELLITUS
     Dosage: 1000 MG, BID
     Route: 048
     Dates: start: 19960101
  5. GABAPENTIN [Concomitant]
     Indication: DIABETIC NEUROPATHY
     Dosage: 600 MG, QHS
     Route: 048
     Dates: start: 20120919
  6. LEVOTHYROXINE [Concomitant]
     Dosage: 50 UG, QD
     Route: 048
     Dates: start: 20130701
  7. PRAVASTATIN [Concomitant]
     Indication: DYSLIPIDAEMIA
     Dosage: 40 MG, QD
     Route: 048
     Dates: start: 20131206

REACTIONS (1)
  - Papillary thyroid cancer [Recovering/Resolving]
